FAERS Safety Report 4788819-9 (Version None)
Quarter: 2005Q4

REPORT INFORMATION
  Report Type: 
  Country: None (occurrence: None)
  Receive Date: 20051005
  Receipt Date: 20050930
  Transmission Date: 20060501
  Serious: Yes (Death, Hospitalization)
  Sender: FDA-Public Use
  Company Number: PHHO2005SG15417

PATIENT
  Age: 63 Year
  Sex: Male
  Weight: 72 kg

DRUGS (3)
  1. NEORAL [Suspect]
     Indication: RENAL TRANSPLANT
     Dosage: 200 MG
     Route: 048
     Dates: start: 19900707, end: 20041206
  2. PREDNISONE [Concomitant]
     Indication: RENAL TRANSPLANT
     Dosage: 10 MG, QD
     Dates: start: 19900707
  3. AZATHIOPRINE [Concomitant]
     Indication: RENAL TRANSPLANT
     Dosage: 50 MG, DAILY
     Dates: start: 19900707

REACTIONS (7)
  - BRADYCARDIA [None]
  - GASTROENTERITIS [None]
  - HYPOTENSION [None]
  - RENAL FAILURE ACUTE [None]
  - SEPSIS [None]
  - SEPTIC SHOCK [None]
  - STAPHYLOCOCCAL INFECTION [None]
